FAERS Safety Report 4949327-5 (Version None)
Quarter: 2006Q1

REPORT INFORMATION
  Report Type: 
  Country: None (occurrence: None)
  Receive Date: 20060315
  Receipt Date: 20060303
  Transmission Date: 20060701
  Serious: Yes (Hospitalization, Other)
  Sender: FDA-Public Use
  Company Number: HQWYE926616AUG05

PATIENT
  Age: 60 Year
  Sex: Female
  Weight: 88.53 kg

DRUGS (3)
  1. PREMARIN [Suspect]
     Dosage: UNK
     Route: 065
  2. CYCRIN [Suspect]
     Dosage: UNK
     Route: 065
  3. PROVERA [Suspect]
     Dosage: UNK
     Route: 065

REACTIONS (3)
  - BREAST CANCER METASTATIC [None]
  - METASTASES TO LYMPH NODES [None]
  - OESTROGEN RECEPTOR ASSAY POSITIVE [None]
